FAERS Safety Report 24625736 (Version 2)
Quarter: 2024Q4

REPORT INFORMATION
  Report Type: Spontaneous
  Country: CZ (occurrence: CZ)
  Receive Date: 20241115
  Receipt Date: 20241216
  Transmission Date: 20250115
  Serious: Yes (Other)
  Sender: AMGEN
  Company Number: CZ-AMGEN-CZESP2024224123

PATIENT
  Age: 33 Year
  Sex: Male

DRUGS (1)
  1. BLINATUMOMAB [Suspect]
     Active Substance: BLINATUMOMAB
     Indication: B-cell type acute leukaemia
     Dosage: UNK
     Route: 065

REACTIONS (7)
  - Acute lymphocytic leukaemia recurrent [Recovered/Resolved]
  - Acute graft versus host disease in eye [Unknown]
  - Hypogammaglobulinaemia [Unknown]
  - Immune effector cell-associated neurotoxicity syndrome [Unknown]
  - Cytokine release syndrome [Unknown]
  - Cytomegalovirus infection [Recovering/Resolving]
  - Drug ineffective [Unknown]
